FAERS Safety Report 7408967-4 (Version None)
Quarter: 2011Q2

REPORT INFORMATION
  Report Type: 
  Country: None (occurrence: None)
  Receive Date: 20110412
  Receipt Date: 20110406
  Transmission Date: 20111010
  Serious: Yes (Death, Hospitalization, Other)
  Sender: FDA-Public Use
  Company Number: DE-ELI_LILLY_AND_COMPANY-DE201102006014

PATIENT
  Sex: Male
  Weight: 83.9 kg

DRUGS (16)
  1. MOLSIDOMIN [Concomitant]
     Indication: CORONARY ARTERY DISEASE
     Dates: start: 20080101
  2. HYDROCHLORZIDE [Concomitant]
     Indication: HYPERTENSION
     Dosage: 25 MG, UNK
     Dates: start: 20080101
  3. DICLOFENAC [Concomitant]
     Indication: TUMOUR PAIN
     Dosage: 50 MG, UNK
     Dates: start: 20100801
  4. ZOLPIDEM TARTRATE [Concomitant]
     Indication: INSOMNIA
     Dosage: 10 MG, UNK
     Dates: start: 20101020
  5. MACROGOL [Concomitant]
     Dosage: UNK
     Dates: start: 20101201
  6. RAMIPRIL [Concomitant]
     Indication: HYPERTENSION
     Dosage: 2.5 MBQ, UNK
     Dates: start: 20080101
  7. PEMETREXED [Suspect]
     Indication: NON-SMALL CELL LUNG CANCER
     Dosage: 1000 MG, OTHER
     Route: 042
     Dates: start: 20100929
  8. TRAMADOL [Concomitant]
     Indication: TUMOUR PAIN
     Dosage: 50 MMOL, UNK
     Dates: start: 20100928
  9. ASPIRIN [Concomitant]
     Indication: CORONARY ARTERY DISEASE
     Dosage: 100 MG, UNK
     Dates: start: 20101021
  10. MAGNESIUM SULFATE [Concomitant]
     Indication: BLOOD MAGNESIUM DECREASED
     Dosage: UNK
     Dates: start: 20101224
  11. METAMIZOL                          /06276702/ [Concomitant]
     Indication: TUMOUR PAIN
     Dosage: 500 MG, UNK
     Dates: start: 20100801
  12. CALCIUM CARBONATE [Concomitant]
     Indication: LUMBAR VERTEBRAL FRACTURE
     Dosage: UNK
     Dates: start: 20101214
  13. METOPROLOL TARTRATE [Concomitant]
     Indication: HYPERTENSION
     Dosage: 100 MG, UNK
     Dates: start: 20080101
  14. SIMVASTATIN [Concomitant]
     Indication: HYPERCHOLESTEROLAEMIA
     Dosage: 40 MG, UNK
     Dates: start: 20080101
  15. MAGNESIUM HYDROGEN ASPARTATE [Concomitant]
     Indication: HYPOMAGNESAEMIA
     Dates: start: 20100928
  16. CISPLATIN [Suspect]
     Indication: NON-SMALL CELL LUNG CANCER
     Dosage: 150 MG, OTHER
     Route: 042
     Dates: start: 20100929

REACTIONS (4)
  - DISEASE PROGRESSION [None]
  - FLANK PAIN [None]
  - HYPONATRAEMIA [None]
  - LEUKOPENIA [None]
